FAERS Safety Report 6997665-7 (Version None)
Quarter: 2010Q3

REPORT INFORMATION
  Report Type: 
  Country: None (occurrence: None)
  Receive Date: 20100918
  Receipt Date: 20091105
  Transmission Date: 20110219
  Serious: No
  Sender: FDA-Public Use
  Company Number: US-WYE-H12080009

PATIENT
  Sex: Female
  Weight: 73.55 kg

DRUGS (3)
  1. PREMPRO [Suspect]
     Indication: HOT FLUSH
     Route: 048
     Dates: start: 20091009, end: 20091102
  2. NADOLOL [Concomitant]
  3. KLOR-CON [Concomitant]

REACTIONS (4)
  - BREAST ENLARGEMENT [None]
  - BREAST TENDERNESS [None]
  - HYPOAESTHESIA [None]
  - VAGINAL HAEMORRHAGE [None]
